FAERS Safety Report 6873279-4 (Version None)
Quarter: 2010Q3

REPORT INFORMATION
  Report Type: 
  Country: None (occurrence: None)
  Receive Date: 20100723
  Receipt Date: 20090214
  Transmission Date: 20110219
  Serious: No
  Sender: FDA-Public Use
  Company Number: US-PFIZER INC-2008159856

PATIENT
  Sex: Male
  Weight: 86.182 kg

DRUGS (3)
  1. CHANTIX [Suspect]
     Indication: SMOKING CESSATION THERAPY
     Dosage: UNK
     Dates: start: 20081101
  2. CHANTIX [Suspect]
     Indication: NICOTINE DEPENDENCE
  3. PROPECIA [Concomitant]
     Dosage: UNK

REACTIONS (2)
  - ALOPECIA [None]
  - DRY SKIN [None]
